FAERS Safety Report 23457073 (Version 1)
Quarter: 2024Q1

REPORT INFORMATION
  Report Type: Spontaneous
  Country: None (occurrence: PT)
  Receive Date: 20240130
  Receipt Date: 20240130
  Transmission Date: 20240410
  Serious: Yes (Death, Other)
  Sender: FDA-Public Use
  Company Number: PT-B.Braun Medical Inc.-2152305

PATIENT

DRUGS (74)
  1. ACETAMINOPHEN [Suspect]
     Active Substance: ACETAMINOPHEN
     Indication: Product used for unknown indication
  2. ACECLOFENAC [Suspect]
     Active Substance: ACECLOFENAC
  3. ASPIRIN\PENTAZOCINE [Suspect]
     Active Substance: ASPIRIN\PENTAZOCINE
  4. ADALIMUMAB [Suspect]
     Active Substance: ADALIMUMAB\ISOPROPYL ALCOHOL
  5. AGOMELATINE [Suspect]
     Active Substance: AGOMELATINE
  6. ALENDRONIC ACID [Suspect]
     Active Substance: ALENDRONIC ACID
  7. ALISKIREN [Suspect]
     Active Substance: ALISKIREN
  8. ANASTROZOLE [Suspect]
     Active Substance: ANASTROZOLE
  9. ATORVASTATIN [Suspect]
     Active Substance: ATORVASTATIN
  10. BISOPROLOL FUMARATE [Suspect]
     Active Substance: BISOPROLOL FUMARATE
  11. BISOPROLOL [Suspect]
     Active Substance: BISOPROLOL\BISOPROLOL FUMARATE
  12. BRINZOLAMIDE [Suspect]
     Active Substance: BRINZOLAMIDE
  13. BUPRENORPHINE [Suspect]
     Active Substance: BUPRENORPHINE
  14. CELECOXIB [Suspect]
     Active Substance: CELECOXIB
  15. CHOLECALCIFEROL [Suspect]
     Active Substance: CHOLECALCIFEROL
  16. CILAZAPRIL [Suspect]
     Active Substance: CILAZAPRIL
  17. CODEINE [Suspect]
     Active Substance: CODEINE
  18. DILTIAZEM [Suspect]
     Active Substance: DILTIAZEM
  19. DOCETAXEL [Suspect]
     Active Substance: DOCETAXEL\DOCETAXEL ANHYDROUS
  20. DOMPERIDONE [Suspect]
     Active Substance: DOMPERIDONE
  21. DONEPEZIL [Suspect]
     Active Substance: DONEPEZIL
  22. DUTASTERIDE [Suspect]
     Active Substance: DUTASTERIDE
  23. ENOXAPARIN SODIUM [Suspect]
     Active Substance: ENOXAPARIN SODIUM
  24. ESCHERICHIA COLI [Suspect]
     Active Substance: ESCHERICHIA COLI
  25. ESCHERICHIA COLI [Suspect]
     Active Substance: ESCHERICHIA COLI
  26. ESCITALOPRAM OXALATE [Suspect]
     Active Substance: ESCITALOPRAM OXALATE
  27. ESOMEPRAZOLE [Suspect]
     Active Substance: ESOMEPRAZOLE
  28. ETANERCEPT [Suspect]
     Active Substance: ETANERCEPT
  29. EXEMESTANE [Suspect]
     Active Substance: EXEMESTANE
  30. EZETIMIBE [Suspect]
     Active Substance: EZETIMIBE
  31. FENOFIBRATE [Suspect]
     Active Substance: FENOFIBRATE
  32. FLUOXETINE [Suspect]
     Active Substance: FLUOXETINE HYDROCHLORIDE
  33. FLUVASTATIN [Suspect]
     Active Substance: FLUVASTATIN SODIUM
  34. GINKGO [Suspect]
     Active Substance: GINKGO
  35. GLUCOSAMINE [Suspect]
     Active Substance: GLUCOSAMINE
  36. HUMAN IMMUNOGLOBULIN G [Suspect]
     Active Substance: HUMAN IMMUNOGLOBULIN G
  37. HYDROCHLOROTHIAZIDE [Suspect]
     Active Substance: HYDROCHLOROTHIAZIDE
  38. HYDROMORPHONE [Suspect]
     Active Substance: HYDROMORPHONE
  39. IBANDRONIC ACID [Suspect]
     Active Substance: IBANDRONIC ACID
  40. IMATINIB MESYLATE [Suspect]
     Active Substance: IMATINIB MESYLATE
  41. IMATINIB [Suspect]
     Active Substance: IMATINIB
  42. INDOMETHACIN SODIUM [Suspect]
     Active Substance: INDOMETHACIN SODIUM
  43. INDOMETHACIN [Suspect]
     Active Substance: INDOMETHACIN
  44. POTASSIUM IODIDE [Suspect]
     Active Substance: POTASSIUM IODIDE
  45. LEDIPASVIR [Suspect]
     Active Substance: LEDIPASVIR
  46. LETROZOLE [Suspect]
     Active Substance: LETROZOLE
  47. LEVOCETIRIZINE [Suspect]
     Active Substance: LEVOCETIRIZINE
  48. MIRTAZAPINE [Suspect]
     Active Substance: MIRTAZAPINE
  49. MYCOPHENOLIC ACID [Suspect]
     Active Substance: MYCOPHENOLIC ACID
  50. NILOTINIB [Suspect]
     Active Substance: NILOTINIB
  51. NIMESULIDE [Suspect]
     Active Substance: NIMESULIDE
  52. NITROGLYCERIN [Suspect]
     Active Substance: NITROGLYCERIN
  53. NORFLOXACIN [Suspect]
     Active Substance: NORFLOXACIN
  54. PENTOXIFYLLINE [Suspect]
     Active Substance: PENTOXIFYLLINE
  55. PITAVASTATIN [Suspect]
     Active Substance: PITAVASTATIN
  56. PRAVASTATIN SODIUM [Suspect]
     Active Substance: PRAVASTATIN SODIUM
  57. PRAVASTATIN [Suspect]
     Active Substance: PRAVASTATIN
  58. PREGABALIN [Suspect]
     Active Substance: PREGABALIN
  59. PROPRANOLOL [Suspect]
     Active Substance: PROPRANOLOL HYDROCHLORIDE
  60. RIBAVIRIN [Suspect]
     Active Substance: RIBAVIRIN
  61. SERTRALINE [Suspect]
     Active Substance: SERTRALINE HYDROCHLORIDE
  62. SIMVASTATIN [Suspect]
     Active Substance: SIMVASTATIN
  63. SODIUM PICOSULFATE [Suspect]
     Active Substance: SODIUM PICOSULFATE
  64. SOFOSBUVIR [Suspect]
     Active Substance: SOFOSBUVIR
  65. TAMSULOSIN HYDROCHLORIDE [Suspect]
     Active Substance: TAMSULOSIN HYDROCHLORIDE
  66. TELMISARTAN [Suspect]
     Active Substance: TELMISARTAN
  67. TOCILIZUMAB [Suspect]
     Active Substance: TOCILIZUMAB
  68. TRAMADOL HYDROCHLORIDE [Suspect]
     Active Substance: TRAMADOL HYDROCHLORIDE
  69. VENLAFAXINE HYDROCHLORIDE [Suspect]
     Active Substance: VENLAFAXINE HYDROCHLORIDE
  70. VENLAFAXINE [Suspect]
     Active Substance: VENLAFAXINE HYDROCHLORIDE
  71. VERAPAMIL HYDROCHLORIDE [Suspect]
     Active Substance: VERAPAMIL HYDROCHLORIDE
  72. VERAPAMIL [Suspect]
     Active Substance: VERAPAMIL HYDROCHLORIDE
  73. VORTIOXETINE [Suspect]
     Active Substance: VORTIOXETINE
  74. ZOLEDRONIC ACID [Suspect]
     Active Substance: ZOLEDRONIC ACID

REACTIONS (45)
  - Diarrhoea [None]
  - Insomnia [None]
  - Sepsis [None]
  - Somnolence [None]
  - Pyrexia [None]
  - Generalised oedema [None]
  - Vision blurred [None]
  - Myalgia [None]
  - Abdominal pain upper [None]
  - Dyspnoea [None]
  - Amaurosis fugax [None]
  - Presyncope [None]
  - Blood pressure increased [None]
  - Dizziness [None]
  - Syncope [None]
  - Malaise [None]
  - Nausea [None]
  - Asthenia [None]
  - Fall [None]
  - Drug interaction [None]
  - Fatigue [None]
  - Altered state of consciousness [None]
  - Ocular discomfort [None]
  - Decreased appetite [None]
  - Tachycardia [None]
  - Vomiting [None]
  - Arthralgia [None]
  - Abdominal pain [None]
  - Tinnitus [None]
  - Headache [None]
  - Head discomfort [None]
  - Haematemesis [None]
  - Ascites [None]
  - Eye pain [None]
  - Photophobia [None]
  - Haematuria [None]
  - Chills [None]
  - Coma [None]
  - Cough [None]
  - Urinary tract disorder [None]
  - Haemorrhagic stroke [None]
  - Cardio-respiratory arrest [None]
  - Pruritus [None]
  - Diplopia [None]
  - Blindness [None]
